FAERS Safety Report 14283876 (Version 1)
Quarter: 2017Q4

REPORT INFORMATION
  Report Type: Spontaneous
  Country: US (occurrence: US)
  Receive Date: 20171213
  Receipt Date: 20171213
  Transmission Date: 20180321
  Serious: Yes (Hospitalization, Disabling)
  Sender: FDA-Public Use
  Company Number: None

PATIENT
  Age: 28 Year
  Sex: Male
  Weight: 76.5 kg

DRUGS (1)
  1. PROPECIA [Suspect]
     Active Substance: FINASTERIDE
     Indication: ALOPECIA
     Dosage: ?          QUANTITY:1 TABLET(S);?
     Route: 048
     Dates: start: 20170109, end: 20170904

REACTIONS (8)
  - Breast mass [None]
  - Breast tenderness [None]
  - Breast enlargement [None]
  - Alopecia [None]
  - Testicular pain [None]
  - Dysuria [None]
  - Breast pain [None]
  - Loss of libido [None]

NARRATIVE: CASE EVENT DATE: 20170904
